FAERS Safety Report 11715591 (Version 1)
Quarter: 2015Q4

REPORT INFORMATION
  Report Type: Spontaneous
  Country: US (occurrence: US)
  Receive Date: 20151109
  Receipt Date: 20151109
  Transmission Date: 20160304
  Serious: No
  Sender: FDA-Public Use
  Company Number: CHPA2015US013281

PATIENT
  Age: 65 Year
  Sex: Female

DRUGS (2)
  1. VOLTAREN [Suspect]
     Active Substance: DICLOFENAC SODIUM
     Indication: ULCER
     Dosage: TINY BIT TWICE, UNK
     Route: 061
     Dates: start: 201510, end: 20151105
  2. VOLTAREN [Suspect]
     Active Substance: DICLOFENAC SODIUM
     Indication: BLISTER

REACTIONS (2)
  - Drug administered at inappropriate site [Unknown]
  - Product use issue [Unknown]

NARRATIVE: CASE EVENT DATE: 201510
